FAERS Safety Report 5206171-1 (Version None)
Quarter: 2006Q4

REPORT INFORMATION
  Report Type: 
  Country: None (occurrence: None)
  Receive Date: 20061026
  Receipt Date: 20061026
  Transmission Date: 20070319
  Serious: No
  Sender: FDA-Public Use
  Company Number: 2006113595

PATIENT
  Age: 75 Year
  Sex: Female

DRUGS (11)
  1. LYRICA [Suspect]
     Indication: PAIN
     Dosage: 50 MG (25 MG, 2 IN 1 D)
     Dates: start: 20060811
  2. WARFARIN SODIUM [Concomitant]
  3. ATENOLOL [Concomitant]
  4. PRILOSEC [Concomitant]
  5. LASIX [Concomitant]
  6. SPIRONOLACTONE [Concomitant]
  7. REVATIO [Concomitant]
  8. SPIRIVA [Concomitant]
  9. DIGOXIN [Concomitant]
  10. SYNTHROID [Concomitant]
  11. OXYGEN (OXYGEN) [Concomitant]

REACTIONS (4)
  - CONDITION AGGRAVATED [None]
  - PAIN [None]
  - SWELLING [None]
  - WEIGHT INCREASED [None]
